FAERS Safety Report 7783055-6 (Version None)
Quarter: 2011Q3

REPORT INFORMATION
  Report Type: 
  Country: None (occurrence: None)
  Receive Date: 20110926
  Receipt Date: 20110908
  Transmission Date: 20111222
  Serious: Yes (Other)
  Sender: FDA-Public Use
  Company Number: DSA_47624_2011

PATIENT
  Age: 82 Year
  Sex: Female

DRUGS (10)
  1. RAMIPRIL [Suspect]
     Indication: PRODUCT USED FOR UNKNOWN INDICATION
     Dosage: (1 UNKNOWN DOSE/1X ORAL)
     Route: 048
     Dates: start: 20110612
  2. PRAVASTATIN [Concomitant]
  3. POTASSIUM CHLORIDE [Concomitant]
  4. ALLOPURINOL [Concomitant]
  5. PERMIXON [Concomitant]
  6. EUPRESSYL /00631801/ (EUPRESSYL) (NOT SPECIFIED) [Suspect]
     Indication: PRODUCT USED FOR UNKNOWN INDICATION
     Dosage: (30MG/1X ORAL)
     Route: 048
     Dates: start: 20110612, end: 20110612
  7. ENALAPRIL MALEATE AND HYDROCHLOROTHIAZIDE [Suspect]
     Indication: PRODUCT USED FOR UNKNOWN INDICATION
     Dosage: (1 UNKNONW DOSE/1X ORAL)
     Route: 048
     Dates: start: 20110612, end: 20110612
  8. TANAKAN [Concomitant]
  9. NIDREL (NIDREL) (NOT SPECIFIED) [Suspect]
     Indication: PRODUCT USED FOR UNKNOWN INDICATION
     Dosage: (1 UNKNOWN DOSE/1X ORAL)
     Route: 048
  10. SOTALOL HYDROCHLORIDE [Suspect]
     Indication: PRODUCT USED FOR UNKNOWN INDICATION
     Dosage: (0.5 UNKNOWN DOSE/1X ORAL)
     Route: 048
     Dates: start: 20110612, end: 20110612

REACTIONS (2)
  - HYPOTENSION [None]
  - INCORRECT DOSE ADMINISTERED [None]
